FAERS Safety Report 9681604 (Version 1)
Quarter: 2013Q4

REPORT INFORMATION
  Report Type: Spontaneous
  Country: US (occurrence: US)
  Receive Date: 20131111
  Receipt Date: 20131111
  Transmission Date: 20140711
  Serious: No
  Sender: FDA-Public Use
  Company Number: US-ENDO PHARMACEUTICALS INC.-CYCB20120005

PATIENT
  Age: 34 Year
  Sex: Female

DRUGS (2)
  1. CYCLOBENZAPRINE HYDROCHLORIDE 5MG [Suspect]
     Indication: TEMPOROMANDIBULAR JOINT SYNDROME
     Route: 048
     Dates: start: 20120829
  2. CYCLOBENZAPRINE HYDROCHLORIDE 5MG [Suspect]
     Indication: ARTHRITIS

REACTIONS (2)
  - Coeliac disease [Not Recovered/Not Resolved]
  - Off label use [Not Recovered/Not Resolved]
